FAERS Safety Report 12010558 (Version 1)
Quarter: 2016Q1

REPORT INFORMATION
  Report Type: Spontaneous
  Country: JP (occurrence: JP)
  Receive Date: 20160205
  Receipt Date: 20160205
  Transmission Date: 20160526
  Serious: Yes (Hospitalization, Other)
  Sender: FDA-Public Use
  Company Number: JP-ASTELLAS-2016JP001544

PATIENT
  Age: 76 Year
  Sex: Female
  Weight: 48 kg

DRUGS (4)
  1. MEROPEN                            /01250501/ [Suspect]
     Active Substance: MEROPENEM
     Indication: URETEROLITHIASIS
     Dosage: UNK UNK, UNKNOWN FREQ.
     Route: 065
  2. RHEUMATREX [Suspect]
     Active Substance: METHOTREXATE SODIUM
     Indication: RHEUMATOID ARTHRITIS
     Route: 048
     Dates: start: 1998, end: 20150113
  3. MEROPEN                            /01250501/ [Suspect]
     Active Substance: MEROPENEM
     Indication: PYELONEPHRITIS
  4. PROGRAF [Suspect]
     Active Substance: TACROLIMUS\TACROLIMUS ANHYDROUS
     Indication: PRODUCT USED FOR UNKNOWN INDICATION
     Route: 048
     Dates: start: 200609, end: 20150113

REACTIONS (4)
  - Lymphoproliferative disorder [Recovering/Resolving]
  - Eosinophilic pneumonia [Recovering/Resolving]
  - Metastases to bone [Unknown]
  - Pyelonephritis [Recovering/Resolving]

NARRATIVE: CASE EVENT DATE: 201412
